FAERS Safety Report 15708305 (Version 1)
Quarter: 2018Q4

REPORT INFORMATION
  Report Type: Report from Study
  Country: CN (occurrence: CN)
  Receive Date: 20181211
  Receipt Date: 20181211
  Transmission Date: 20190205
  Serious: Yes (Hospitalization)
  Sender: FDA-Public Use
  Company Number: CN-ASTRAZENECA-2018SE96391

PATIENT
  Age: 61 Year
  Sex: Female
  Weight: 86 kg

DRUGS (3)
  1. INSULIN ASPART [Concomitant]
     Active Substance: INSULIN ASPART
  2. BYETTA [Suspect]
     Active Substance: EXENATIDE
     Indication: DIABETES MELLITUS
     Route: 058
     Dates: start: 201805
  3. INSULIN GLARGINE [Concomitant]
     Active Substance: INSULIN GLARGINE

REACTIONS (9)
  - Blood glucose increased [Not Recovered/Not Resolved]
  - Blood pressure increased [Not Recovered/Not Resolved]
  - Blood glucose fluctuation [Not Recovered/Not Resolved]
  - Product quality issue [Unknown]
  - Injection site swelling [Not Recovered/Not Resolved]
  - Skin ulcer [Not Recovered/Not Resolved]
  - Weight increased [Not Recovered/Not Resolved]
  - Cardiac discomfort [Not Recovered/Not Resolved]
  - Injection site erythema [Not Recovered/Not Resolved]

NARRATIVE: CASE EVENT DATE: 2018
